FAERS Safety Report 5507718-8 (Version None)
Quarter: 2007Q4

REPORT INFORMATION
  Report Type: 
  Country: None (occurrence: None)
  Receive Date: 20071105
  Receipt Date: 20071105
  Transmission Date: 20080405
  Serious: Yes (Other)
  Sender: FDA-Public Use
  Company Number: None

PATIENT
  Age: 51 Year
  Sex: Female
  Weight: 81.1939 kg

DRUGS (1)
  1. LEVAQUIN [Suspect]
     Indication: BRONCHITIS
     Dosage: 500 OR 750 MG ONCE A DAY PO
     Route: 048
     Dates: start: 20070913, end: 20070915

REACTIONS (2)
  - DRUG HYPERSENSITIVITY [None]
  - HALLUCINATION [None]
